FAERS Safety Report 10065483 (Version 14)
Quarter: 2016Q2

REPORT INFORMATION
  Report Type: Report from Study
  Country: CA (occurrence: CA)
  Receive Date: 20140408
  Receipt Date: 20160615
  Transmission Date: 20160815
  Serious: No
  Sender: FDA-Public Use
  Company Number: PHHY2013CA013084

PATIENT
  Age: 48 Year
  Sex: Male

DRUGS (5)
  1. SANDOSTATIN [Suspect]
     Active Substance: OCTREOTIDE ACETATE
     Indication: CROHN^S DISEASE
     Dosage: UNK UNK, TID
     Route: 058
     Dates: start: 20121115, end: 201212
  2. SANDOSTATIN LAR DEPOT [Suspect]
     Active Substance: OCTREOTIDE ACETATE
     Indication: CROHN^S DISEASE
     Dosage: 10 MG, QMO
     Route: 030
     Dates: start: 20121211
  3. SANDOSTATIN LAR DEPOT [Suspect]
     Active Substance: OCTREOTIDE ACETATE
     Dosage: 20 MG, QMO (EVERY 4 WEEKS)
     Route: 030
  4. SANDOSTATIN [Suspect]
     Active Substance: OCTREOTIDE ACETATE
     Indication: PAIN
  5. SANDOSTATIN LAR DEPOT [Suspect]
     Active Substance: OCTREOTIDE ACETATE
     Indication: PAIN
     Dosage: 20 MG, QMO
     Route: 030

REACTIONS (18)
  - Malaise [Unknown]
  - Blood pressure increased [Unknown]
  - Body temperature decreased [Unknown]
  - Blood iron decreased [Unknown]
  - Influenza [Unknown]
  - Needle issue [Unknown]
  - Abdominal pain [Recovered/Resolved]
  - Constipation [Unknown]
  - Nausea [Unknown]
  - Herpes virus infection [Unknown]
  - Fatigue [Recovered/Resolved]
  - Blood test abnormal [Unknown]
  - Pyrexia [Unknown]
  - Product quality issue [Unknown]
  - Arthralgia [Unknown]
  - Heart rate increased [Unknown]
  - Abdominal distension [Unknown]
  - Product use issue [Unknown]

NARRATIVE: CASE EVENT DATE: 201308
